FAERS Safety Report 15927809 (Version 2)
Quarter: 2019Q1

REPORT INFORMATION
  Report Type: Report from Study
  Country: US (occurrence: US)
  Receive Date: 20190206
  Receipt Date: 20190304
  Transmission Date: 20190417
  Serious: Yes (Other)
  Sender: FDA-Public Use
  Company Number: US-ALEXION PHARMACEUTICALS INC.-A201901508

PATIENT
  Sex: Male

DRUGS (2)
  1. SOLIRIS [Suspect]
     Active Substance: ECULIZUMAB
     Indication: ATYPICAL HAEMOLYTIC URAEMIC SYNDROME
     Dosage: UNK, Q2W
     Route: 042
  2. SOLIRIS [Suspect]
     Active Substance: ECULIZUMAB
     Dosage: 1200 MG, UNK
     Route: 042

REACTIONS (31)
  - Serum ferritin increased [Not Recovered/Not Resolved]
  - Iron binding capacity total decreased [Unknown]
  - Neutrophil count increased [Unknown]
  - Blood chloride decreased [Unknown]
  - Elliptocytosis [Unknown]
  - Blood urea nitrogen/creatinine ratio increased [Unknown]
  - Blood glucose decreased [Unknown]
  - Immature granulocyte count increased [Unknown]
  - Red blood cell count decreased [Unknown]
  - Haematocrit decreased [Not Recovered/Not Resolved]
  - Haemoglobin decreased [Not Recovered/Not Resolved]
  - Red blood cell poikilocytes present [Unknown]
  - Aspartate aminotransferase decreased [Unknown]
  - Platelet count decreased [Not Recovered/Not Resolved]
  - Blood creatinine increased [Not Recovered/Not Resolved]
  - Blood urea increased [Not Recovered/Not Resolved]
  - Mean platelet volume increased [Unknown]
  - Lymphocyte morphology abnormal [Unknown]
  - Red blood cell sedimentation rate decreased [Unknown]
  - Blood phosphorus increased [Not Recovered/Not Resolved]
  - Anion gap increased [Unknown]
  - Anisocytosis [Unknown]
  - Carbon dioxide decreased [Unknown]
  - Blood chloride increased [Unknown]
  - Monocyte count increased [Unknown]
  - Red cell distribution width increased [Unknown]
  - Blood urea nitrogen/creatinine ratio decreased [Unknown]
  - Polychromasia [Unknown]
  - Thrombotic microangiopathy [Not Recovered/Not Resolved]
  - Lymphocyte count decreased [Unknown]
  - Blood calcium increased [Unknown]

NARRATIVE: CASE EVENT DATE: 20190103
